FAERS Safety Report 11701479 (Version 2)
Quarter: 2015Q4

REPORT INFORMATION
  Report Type: Spontaneous
  Country: FR (occurrence: FR)
  Receive Date: 20151105
  Receipt Date: 20151112
  Transmission Date: 20160304
  Serious: Yes (Death, Hospitalization, Other)
  Sender: FDA-Public Use
  Company Number: FR-009507513-1511FRA002319

PATIENT
  Age: 71 Year
  Sex: Male

DRUGS (23)
  1. NITROGLYCERIN. [Suspect]
     Active Substance: NITROGLYCERIN
     Dosage: UNK
  2. PROPRANOLOL [Suspect]
     Active Substance: PROPRANOLOL\PROPRANOLOL HYDROCHLORIDE
     Dosage: 20 MG, QD
     Route: 048
  3. PIPAMPERONE [Suspect]
     Active Substance: PIPAMPERONE
     Dosage: 20 MG, QD
     Route: 048
  4. ASPIRIN LYSINE [Suspect]
     Active Substance: ASPIRIN LYSINE
     Dosage: 20 MG, QD
     Route: 048
  5. FUROSEMIDE. [Suspect]
     Active Substance: FUROSEMIDE
     Dosage: 40 MG, QD
     Route: 048
  6. TRIHEXYPHENIDYL HYDROCHLORIDE. [Suspect]
     Active Substance: TRIHEXYPHENIDYL HYDROCHLORIDE
     Dosage: 1 DF, QD
     Route: 048
  7. ZOPICLONE [Suspect]
     Active Substance: ZOPICLONE
     Dosage: 15 MG, QD
     Route: 048
  8. SALMETEROL XINAFOATE [Suspect]
     Active Substance: SALMETEROL XINAFOATE
     Dosage: 1 PUFF, BID
     Route: 045
  9. POLYETHYLENE GLYCOL 3350. [Suspect]
     Active Substance: POLYETHYLENE GLYCOL 3350
     Indication: PRODUCT USED FOR UNKNOWN INDICATION
     Dosage: 2 DF, QD
  10. ZOCOR [Suspect]
     Active Substance: SIMVASTATIN
     Dosage: 20 MG, QD
     Route: 048
  11. MIANSERIN HYDROCHLORIDE [Suspect]
     Active Substance: MIANSERIN HYDROCHLORIDE
     Dosage: 60 MG, QD
     Route: 048
  12. NITROGLYCERIN. [Suspect]
     Active Substance: NITROGLYCERIN
     Dosage: 10 MG, QD
     Route: 048
  13. URBANYL [Suspect]
     Active Substance: CLOBAZAM
     Dosage: 10 MG, TID
     Route: 048
  14. VENTOLIN [Suspect]
     Active Substance: ALBUTEROL SULFATE
     Dosage: UNK
     Route: 045
  15. CELEBREX [Suspect]
     Active Substance: CELECOXIB
     Dosage: UNK
  16. ACETAMINOPHEN. [Suspect]
     Active Substance: ACETAMINOPHEN
     Dosage: 1000 MG, BID
     Route: 048
  17. ALTACE [Suspect]
     Active Substance: RAMIPRIL
     Dosage: 5 MG, QD
     Route: 048
  18. OMEPRAZOLE MAGNESIUM. [Suspect]
     Active Substance: OMEPRAZOLE MAGNESIUM
     Dosage: 20 MG, QD
     Route: 048
  19. DIACEREIN [Suspect]
     Active Substance: DIACEREIN
     Dosage: 50 MG, BID
     Route: 048
  20. OXYGEN. [Concomitant]
     Active Substance: OXYGEN
     Dosage: UNK
  21. ISOPTIN [Suspect]
     Active Substance: VERAPAMIL HYDROCHLORIDE
     Dosage: ORA240 MG, QD
  22. CLONAZEPAM. [Suspect]
     Active Substance: CLONAZEPAM
     Dosage: 4 MG, QD
     Route: 048
  23. PREDNAZOLINE [Concomitant]
     Active Substance: PREDNAZOLINE
     Dosage: 1 PUFF, QD
     Route: 045

REACTIONS (5)
  - Cerebral artery thrombosis [Fatal]
  - Ischaemic stroke [Fatal]
  - Respiratory distress [Fatal]
  - Nausea [Fatal]
  - Respiratory failure [Fatal]
